FAERS Safety Report 11269856 (Version 1)
Quarter: 2015Q3

REPORT INFORMATION
  Report Type: Spontaneous
  Country: CN (occurrence: CN)
  Receive Date: 20150714
  Receipt Date: 20150714
  Transmission Date: 20151125
  Serious: Yes (Other)
  Sender: FDA-Public Use
  Company Number: CN-BAYER-2015-371510

PATIENT
  Age: 56 Year
  Sex: Female
  Weight: 62.5 kg

DRUGS (3)
  1. NOVONORM [Suspect]
     Active Substance: REPAGLINIDE
     Indication: HYPERGLYCAEMIA
     Dosage: 1 MG, TID
     Route: 048
     Dates: start: 20150129, end: 20150202
  2. GLUCOBAY [Suspect]
     Active Substance: ACARBOSE
     Indication: HYPERGLYCAEMIA
     Dosage: 50 MG, TID
     Route: 048
     Dates: start: 20150129, end: 20150202
  3. SULPERAZONE [Concomitant]
     Active Substance: CEFOPERAZONE SODIUM\SULBACTAM SODIUM
     Indication: INFECTION
     Dosage: 3 G, BID
     Route: 042
     Dates: start: 20150112, end: 20150205

REACTIONS (3)
  - Back pain [Recovering/Resolving]
  - White blood cells urine positive [Recovering/Resolving]
  - Red blood cells urine positive [Recovering/Resolving]

NARRATIVE: CASE EVENT DATE: 20150202
